FAERS Safety Report 4894556-2 (Version None)
Quarter: 2006Q1

REPORT INFORMATION
  Report Type: 
  Country: None (occurrence: None)
  Receive Date: 20060127
  Receipt Date: 20060121
  Transmission Date: 20060701
  Serious: Yes (Hospitalization)
  Sender: FDA-Public Use
  Company Number: MY-MERCK-0601MYS00003

PATIENT
  Age: 60 Year
  Sex: Female

DRUGS (1)
  1. FOSAMAX [Suspect]
     Route: 048

REACTIONS (5)
  - DRUG ADMINISTRATION ERROR [None]
  - MELAENA [None]
  - MYOSITIS [None]
  - NASOPHARYNGEAL DISORDER [None]
  - THERMAL BURN [None]
